FAERS Safety Report 6135164-5 (Version None)
Quarter: 2009Q1

REPORT INFORMATION
  Report Type: 
  Country: None (occurrence: None)
  Receive Date: 20090327
  Receipt Date: 20090320
  Transmission Date: 20090719
  Serious: Yes (Congenital Anomaly)
  Sender: FDA-Public Use
  Company Number: FR-BRISTOL-MYERS SQUIBB COMPANY-14562649

PATIENT
  Age: 1 Day
  Sex: Female
  Weight: 3 kg

DRUGS (8)
  1. GLUCOPHAGE [Suspect]
     Route: 064
     Dates: end: 20070215
  2. ACTOS [Suspect]
     Dosage: FORMULATION: TABS
     Route: 064
     Dates: end: 20070215
  3. TRIATEC [Suspect]
     Dosage: FORMULATION: TABS
     Route: 064
     Dates: end: 20070215
  4. NEXIUM [Suspect]
     Dosage: FORMULATION: TAB
     Route: 064
     Dates: end: 20070215
  5. DICETEL [Suspect]
     Route: 064
     Dates: end: 20070215
  6. NOVOLOG MIX 70/30 [Concomitant]
     Dosage: 6.5 WEEKS OF AMENORRHEA
     Route: 064
  7. INSULATARD [Concomitant]
     Dosage: INJECION 6.5 WEEKS OF AMENORRHEA
     Route: 064
  8. NOVORAPID [Concomitant]
     Dosage: 6.5 WEEKS OF AMENORRHEA
     Route: 064

REACTIONS (2)
  - ANOTIA [None]
  - PREGNANCY [None]
